FAERS Safety Report 17664033 (Version 1)
Quarter: 2020Q2

REPORT INFORMATION
  Report Type: Report from Study
  Country: FR (occurrence: FR)
  Receive Date: 20200414
  Receipt Date: 20200414
  Transmission Date: 20200713
  Serious: Yes (Other)
  Sender: FDA-Public Use
  Company Number: FR-ROCHE-2582872

PATIENT
  Age: 37 Year
  Sex: Female

DRUGS (3)
  1. GANCICLOVIR. [Suspect]
     Active Substance: GANCICLOVIR
     Indication: HERPES SIMPLEX
     Dosage: 2000 MICROG/0.05 ML
     Route: 050
  2. ACYCLOVIR [ACICLOVIR] [Suspect]
     Active Substance: ACYCLOVIR
     Indication: HERPES SIMPLEX
     Route: 042
  3. VALACYCLOVIR [Suspect]
     Active Substance: VALACYCLOVIR HYDROCHLORIDE
     Indication: HERPES SIMPLEX
     Route: 048

REACTIONS (3)
  - Optic atrophy [Unknown]
  - Off label use [Unknown]
  - Intentional product use issue [Unknown]
